FAERS Safety Report 22530240 (Version 2)
Quarter: 2023Q4

REPORT INFORMATION
  Report Type: Spontaneous
  Country: CN (occurrence: CN)
  Receive Date: 20230607
  Receipt Date: 20231006
  Transmission Date: 20240109
  Serious: Yes (Life-Threatening)
  Sender: FDA-Public Use
  Company Number: CN-BAYER-2023A078177

PATIENT
  Age: 82 Year
  Sex: Female

DRUGS (1)
  1. ULTRAVIST [Suspect]
     Active Substance: IOPROMIDE
     Indication: Angiocardiogram
     Dosage: 65 ML, ONCE
     Route: 041
     Dates: start: 20230530, end: 20230530

REACTIONS (5)
  - Rash erythematous [Recovering/Resolving]
  - Cyanosis [None]
  - Pyrexia [None]
  - Blood pressure abnormal [None]
  - Incorrect drug administration rate [None]

NARRATIVE: CASE EVENT DATE: 20230530
